FAERS Safety Report 17705214 (Version 3)
Quarter: 2020Q2

REPORT INFORMATION
  Report Type: Spontaneous
  Country: US (occurrence: US)
  Receive Date: 20200424
  Receipt Date: 20200629
  Transmission Date: 20200714
  Serious: No
  Sender: FDA-Public Use
  Company Number: US-PFIZER INC-2020161097

PATIENT
  Age: 78 Year
  Sex: Male

DRUGS (2)
  1. IBRANCE [Suspect]
     Active Substance: PALBOCICLIB
     Dosage: 125 MG, CYCLIC (1 CAPSULE BY MOUTH DAILY FOR 21 DAYS EVERY 28 DAYS)
     Route: 048
     Dates: start: 20200219
  2. IBRANCE [Suspect]
     Active Substance: PALBOCICLIB
     Indication: BREAST CANCER MALE
     Dosage: 125 MG, DAILY
     Dates: start: 20200215

REACTIONS (1)
  - Pruritus [Recovered/Resolved]
